FAERS Safety Report 7168831-5 (Version None)
Quarter: 2010Q4

REPORT INFORMATION
  Report Type: 
  Country: None (occurrence: None)
  Receive Date: 20101216
  Receipt Date: 20100305
  Transmission Date: 20110411
  Serious: No
  Sender: FDA-Public Use
  Company Number: US-AMGEN-KDL385072

PATIENT

DRUGS (5)
  1. ENBREL [Suspect]
     Indication: RHEUMATOID ARTHRITIS
     Dosage: 50 MG, QWK
     Route: 058
     Dates: start: 20070730
  2. ENBREL [Suspect]
     Indication: PSORIATIC ARTHROPATHY
  3. ENBREL [Suspect]
     Indication: JUVENILE ARTHRITIS
  4. ENBREL [Suspect]
     Indication: PSORIASIS
  5. METHOTREXATE [Concomitant]
     Dosage: UNK UNK, UNK
     Dates: start: 20070701

REACTIONS (8)
  - BACK PAIN [None]
  - GAIT DISTURBANCE [None]
  - JOINT EFFUSION [None]
  - JOINT SWELLING [None]
  - NASAL CONGESTION [None]
  - PAIN [None]
  - RHINORRHOEA [None]
  - SNEEZING [None]
